FAERS Safety Report 5007216-4 (Version None)
Quarter: 2006Q1

REPORT INFORMATION
  Report Type: 
  Country: None (occurrence: None)
  Receive Date: 20060320
  Receipt Date: 20050413
  Transmission Date: 20060701
  Serious: Yes (Other)
  Sender: FDA-Public Use
  Company Number: 2005-04-0939

PATIENT
  Age: 23 Year
  Sex: Female
  Weight: 76.2043 kg

DRUGS (9)
  1. PEG-INTRON [Suspect]
     Indication: HEPATITIS C
     Dosage: SUBCUTANEOUS
     Route: 058
     Dates: start: 20041124, end: 20050413
  2. REBETOL [Suspect]
     Indication: HEPATITIS C
     Dosage: ORAL
     Route: 048
     Dates: start: 20041124, end: 20050413
  3. ALEVE (CAPLET) [Concomitant]
  4. FERROUS SULFATE TAB [Concomitant]
  5. MOTRIN [Concomitant]
  6. PRENATAL VITAMINS [Concomitant]
  7. SEROQUEL [Concomitant]
  8. TYLENOL (CAPLET) [Concomitant]
  9. ZOLOFT [Concomitant]

REACTIONS (2)
  - RETINAL HAEMORRHAGE [None]
  - VISUAL ACUITY REDUCED [None]
